FAERS Safety Report 15904941 (Version 1)
Quarter: 2019Q1

REPORT INFORMATION
  Report Type: Report from Study
  Country: US (occurrence: US)
  Receive Date: 20190204
  Receipt Date: 20190204
  Transmission Date: 20190417
  Serious: Yes (Hospitalization)
  Sender: FDA-Public Use
  Company Number: US-ROCHE-2232055

PATIENT
  Age: 61 Year
  Sex: Male
  Weight: 76.8 kg

DRUGS (2)
  1. OBINUTUZUMAB. [Suspect]
     Active Substance: OBINUTUZUMAB
     Indication: B-CELL LYMPHOMA
     Dosage: LAST ADMINISTERED DATE: 11/28/2018, 31/OCT/2018?ON DAY 1.
     Route: 042
  2. LENALIDOMIDE [Suspect]
     Active Substance: LENALIDOMIDE
     Indication: B-CELL LYMPHOMA
     Dosage: LAST ADMINISTERED DATE: 12/06/2018 AND 31/OCT/2018??ON DAY 1-21.
     Route: 048

REACTIONS (4)
  - Abdominal pain [Recovered/Resolved]
  - Muscular weakness [Recovering/Resolving]
  - Constipation [Recovered/Resolved]
  - Anaemia [Recovered/Resolved with Sequelae]

NARRATIVE: CASE EVENT DATE: 20181119
